FAERS Safety Report 7763012-6 (Version None)
Quarter: 2011Q3

REPORT INFORMATION
  Report Type: 
  Country: None (occurrence: None)
  Receive Date: 20110920
  Receipt Date: 20110914
  Transmission Date: 20111222
  Serious: Yes (Hospitalization)
  Sender: FDA-Public Use
  Company Number: GB-UCBSA-041381

PATIENT
  Age: 10 Month
  Sex: Male

DRUGS (6)
  1. CETIRIZINE HCL [Suspect]
     Indication: DIFFUSE CUTANEOUS MASTOCYTOSIS
  2. KETOTIFEN FUMARATE [Concomitant]
     Indication: DIFFUSE CUTANEOUS MASTOCYTOSIS
  3. DIMETHINDINE MALEATE [Concomitant]
     Indication: DIFFUSE CUTANEOUS MASTOCYTOSIS
     Route: 048
  4. LEVOCETIRIZINE DIHYDROCHLORIDE [Suspect]
  5. DESLORATIDINE [Concomitant]
  6. DIMETHINDINE MALEATE [Concomitant]
     Dosage: RE-INITIATED
     Route: 048

REACTIONS (5)
  - FLUSHING [None]
  - BLISTER [None]
  - OEDEMA PERIPHERAL [None]
  - DIARRHOEA [None]
  - FACE OEDEMA [None]
